FAERS Safety Report 9045839 (Version 1)
Quarter: 2013Q1

REPORT INFORMATION
  Report Type: Spontaneous
  Country: US (occurrence: US)
  Receive Date: 20130201
  Receipt Date: 20130201
  Transmission Date: 20140127
  Serious: No
  Sender: FDA-Public Use
  Company Number: US-ABBOTT-12P-163-1016659-00

PATIENT
  Age: 68 Year
  Sex: Female

DRUGS (15)
  1. HUMIRA [Suspect]
     Indication: RHEUMATOID ARTHRITIS
     Dates: start: 20121116
  2. PREDNISONE [Concomitant]
     Indication: PRODUCT USED FOR UNKNOWN INDICATION
  3. INDERAL LA [Concomitant]
     Indication: PRODUCT USED FOR UNKNOWN INDICATION
     Dosage: 160MG DAILY
  4. LEVOXYL [Concomitant]
     Indication: PRODUCT USED FOR UNKNOWN INDICATION
     Dosage: ON TUESDAY, WEDNESDAY, THURSDAY, SATURDAY, AND SUNDAY
  5. LEVOXYL [Concomitant]
     Dosage: ON MONDAY, AND FIRDAY
  6. CYMBALTA [Concomitant]
     Indication: DEPRESSION
     Dosage: 60MG DAILY
  7. ACTONEL [Concomitant]
     Indication: PRODUCT USED FOR UNKNOWN INDICATION
  8. HYDROCODONE [Concomitant]
     Indication: PRODUCT USED FOR UNKNOWN INDICATION
     Dosage: 5/325MG DAILY
  9. ECOTRIN [Concomitant]
     Indication: PRODUCT USED FOR UNKNOWN INDICATION
     Dosage: LOW DOSE FORM, 81MG DAILY
  10. CENTRUM SILVER [Concomitant]
     Indication: PRODUCT USED FOR UNKNOWN INDICATION
     Dosage: DAILY
  11. VITAMIN D [Concomitant]
     Indication: PRODUCT USED FOR UNKNOWN INDICATION
     Dosage: 2 DAILY
  12. CITRACAL [Concomitant]
     Indication: PRODUCT USED FOR UNKNOWN INDICATION
     Dosage: 1 DAILY
  13. MIRALAX [Concomitant]
     Indication: PRODUCT USED FOR UNKNOWN INDICATION
     Dosage: POWDER, DAILY
  14. BENEFIBER [Concomitant]
     Indication: PRODUCT USED FOR UNKNOWN INDICATION
     Dosage: DAILY
  15. ZOFRAN [Concomitant]
     Indication: NAUSEA

REACTIONS (2)
  - Pain [Not Recovered/Not Resolved]
  - Nausea [Not Recovered/Not Resolved]
